FAERS Safety Report 24820846 (Version 1)
Quarter: 2025Q1

REPORT INFORMATION
  Report Type: Spontaneous
  Country: US (occurrence: US)
  Receive Date: 20250108
  Receipt Date: 20250108
  Transmission Date: 20250409
  Serious: No
  Sender: SANOFI AVENTIS
  Company Number: US-SA-2025SA003990

PATIENT
  Sex: Male
  Weight: 70.45 kg

DRUGS (4)
  1. DUPIXENT [Suspect]
     Active Substance: DUPILUMAB
     Indication: Asthma
     Dosage: 300 MG, QOW
     Route: 058
  2. AUVI-Q [Concomitant]
     Active Substance: EPINEPHRINE
  3. SYMBICORT [Concomitant]
     Active Substance: BUDESONIDE\FORMOTEROL FUMARATE DIHYDRATE
  4. PROAIR DIGIHALER [Concomitant]
     Active Substance: ALBUTEROL SULFATE

REACTIONS (5)
  - Fall [Unknown]
  - Clavicle fracture [Unknown]
  - Hand fracture [Unknown]
  - Influenza [Unknown]
  - Chest discomfort [Unknown]
